FAERS Safety Report 22072110 (Version 2)
Quarter: 2023Q1

REPORT INFORMATION
  Report Type: Spontaneous
  Country: DE (occurrence: DE)
  Receive Date: 20230308
  Receipt Date: 20230331
  Transmission Date: 20230418
  Serious: Yes (Hospitalization)
  Sender: FDA-Public Use
  Company Number: DE-CELGENE-DEU-20190506903

PATIENT
  Age: 6 Year
  Sex: Male
  Weight: 20.8 kg

DRUGS (18)
  1. AZACITIDINE [Suspect]
     Active Substance: AZACITIDINE
     Indication: Refractory cancer
     Dosage: EVERY 1 DAYS
     Route: 042
     Dates: start: 20190411
  2. AZACITIDINE [Suspect]
     Active Substance: AZACITIDINE
     Indication: Recurrent cancer
  3. VENETOCLAX [Suspect]
     Active Substance: VENETOCLAX
     Indication: Refractory cancer
     Dosage: 40 MG, EVERY 1 DAYS; 80 MG, EVERY 1 DAYS; 170 MG, EVERY 1 DAY
     Route: 048
     Dates: start: 20190403, end: 20190403
  4. VENETOCLAX [Suspect]
     Active Substance: VENETOCLAX
     Indication: Recurrent cancer
     Dosage: 40 MG, EVERY 1 DAYS; 80 MG, EVERY 1 DAYS; 170 MG, EVERY 1 DAY
     Route: 048
     Dates: start: 20190404, end: 20190404
  5. VENETOCLAX [Suspect]
     Active Substance: VENETOCLAX
     Dosage: 40 MG, EVERY 1 DAYS; 80 MG, EVERY 1 DAYS; 170 MG, EVERY 1 DAY
     Route: 048
     Dates: start: 20190405, end: 20190405
  6. OMEPRAZOLE [Concomitant]
     Active Substance: OMEPRAZOLE
     Indication: Gastritis prophylaxis
     Dosage: 10 MILLIGRAM
     Route: 048
     Dates: start: 20190317
  7. ACYCLOVIR [Concomitant]
     Active Substance: ACYCLOVIR
     Indication: Antiviral prophylaxis
     Dosage: 600 MILLIGRAM
     Route: 048
     Dates: start: 20130317
  8. AMBISOME [Concomitant]
     Active Substance: AMPHOTERICIN B
     Indication: Antifungal prophylaxis
     Dosage: 50 MG, EVERY 3 DAYS
     Route: 042
     Dates: start: 20190409
  9. GRANISETRON HYDROCHLORIDE [Concomitant]
     Active Substance: GRANISETRON HYDROCHLORIDE
     Indication: Nausea
     Dosage: 0.4 MG, AS NECESSARY
     Route: 042
     Dates: start: 20190411
  10. FOSFOMYCIN SODIUM [Concomitant]
     Active Substance: FOSFOMYCIN SODIUM
     Indication: Pyrexia
     Route: 042
     Dates: start: 20190415, end: 20190417
  11. FOSFOMYCIN SODIUM [Concomitant]
     Active Substance: FOSFOMYCIN SODIUM
     Route: 042
     Dates: start: 20190425
  12. PRIVIGEN [Concomitant]
     Active Substance: HUMAN IMMUNOGLOBULIN G
     Indication: Immune system disorder
     Dosage: 10 GRAM
     Route: 042
     Dates: start: 20190416
  13. unacid [Concomitant]
     Indication: Infection prophylaxis
     Dosage: 30 MILLILITER
     Route: 048
     Dates: start: 20190418, end: 20190506
  14. unacid [Concomitant]
     Dosage: 1000 MILLIGRAM
     Route: 048
     Dates: start: 20190512
  15. laxans [Concomitant]
     Indication: Constipation
     Dosage: 15 DROPS
     Route: 048
     Dates: start: 20190424
  16. PANTOPRAZOL CODRAMOL [Concomitant]
     Indication: Infection prophylaxis
     Dosage: 720 MILLIGRAM
     Route: 048
     Dates: start: 20190409
  17. ACETAMINOPHEN [Concomitant]
     Active Substance: ACETAMINOPHEN
     Indication: Pyrexia
     Dosage: 350 MILLIGRAM
     Route: 048
     Dates: start: 20190403
  18. ACETAMINOPHEN [Concomitant]
     Active Substance: ACETAMINOPHEN
     Indication: Pain

REACTIONS (3)
  - Rhinovirus infection [Recovered/Resolved]
  - Staphylococcus test positive [Unknown]
  - Constipation [Unknown]

NARRATIVE: CASE EVENT DATE: 20190506
